FAERS Safety Report 17541197 (Version 1)
Quarter: 2020Q1

REPORT INFORMATION
  Report Type: Spontaneous
  Country: PT (occurrence: PT)
  Receive Date: 20200313
  Receipt Date: 20200313
  Transmission Date: 20200409
  Serious: Yes (Other)
  Sender: FDA-Public Use
  Company Number: PT-SA-2020SA064848

PATIENT
  Age: 39 Year
  Sex: Female
  Weight: 51 kg

DRUGS (12)
  1. MYCOPHENOLATE MOFETIL. [Concomitant]
     Active Substance: MYCOPHENOLATE MOFETIL
     Dosage: 1 G + 0,5 G
  2. NYSTATIN. [Concomitant]
     Active Substance: NYSTATIN
  3. PANTOPRAZOLE [Concomitant]
     Active Substance: PANTOPRAZOLE
  4. TACROLIMUS. [Concomitant]
     Active Substance: TACROLIMUS
  5. ADALAT CC [Concomitant]
     Active Substance: NIFEDIPINE
     Route: 048
  6. ANTI-THYMOCYTE GLOBULIN (RABBIT) NOS [Suspect]
     Active Substance: LAPINE T-LYMPHOCYTE IMMUNE GLOBULIN
     Indication: IMMUNOSUPPRESSION
     Dosage: 700MG 7DAYS
     Route: 042
     Dates: start: 20140826, end: 20140902
  7. CARVEDILOL. [Concomitant]
     Active Substance: CARVEDILOL
  8. PREDNISOLONE. [Concomitant]
     Active Substance: PREDNISOLONE
  9. CLONIDINE. [Concomitant]
     Active Substance: CLONIDINE
     Dosage: 4XDAY
  10. COTRIMOXAZOL [Concomitant]
     Active Substance: SULFAMETHOXAZOLE\TRIMETHOPRIM
     Dosage: 480 MG, QD
     Route: 048
  11. VALGANCICLOVIR. [Concomitant]
     Active Substance: VALGANCICLOVIR
  12. EPOETIN BETA [Concomitant]
     Active Substance: ERYTHROPOIETIN
     Route: 042

REACTIONS (1)
  - Haemolytic anaemia [Recovered/Resolved]

NARRATIVE: CASE EVENT DATE: 20140903
